FAERS Safety Report 10384836 (Version 1)
Quarter: 2014Q3

REPORT INFORMATION
  Report Type: Spontaneous
  Country: SG (occurrence: None)
  Receive Date: 20140812
  Receipt Date: 20140812
  Transmission Date: 20150326
  Serious: Yes (Other)
  Sender: FDA-Public Use
  Company Number: 2014AP003829

PATIENT
  Age: 77 Year
  Sex: Female

DRUGS (1)
  1. ALENDRONATE (ALENDRONATE) TABLET [Suspect]
     Active Substance: ALENDRONATE SODIUM
     Indication: OSTEOPOROSIS
     Dates: start: 2014

REACTIONS (1)
  - Atypical fracture [None]
